FAERS Safety Report 6554096-1 (Version None)
Quarter: 2010Q1

REPORT INFORMATION
  Report Type: 
  Country: None (occurrence: None)
  Receive Date: 20100127
  Receipt Date: 20100115
  Transmission Date: 20100710
  Serious: Yes (Hospitalization)
  Sender: FDA-Public Use
  Company Number: US-ELI_LILLY_AND_COMPANY-US200902002184

PATIENT
  Sex: Female

DRUGS (5)
  1. CYMBALTA [Suspect]
     Indication: PAIN
     Dosage: 30 MG, DAILY (1/D)
     Dates: start: 20081218
  2. CYMBALTA [Suspect]
     Dosage: 1 D/F, UNK
  3. PERCOCET [Concomitant]
  4. FENTANYL [Concomitant]
     Route: 062
  5. OXYCONTIN [Concomitant]

REACTIONS (9)
  - ANXIETY [None]
  - CHEST PAIN [None]
  - DEMENTIA [None]
  - DEPRESSION [None]
  - DISORIENTATION [None]
  - GAIT DISTURBANCE [None]
  - HALLUCINATION [None]
  - INTERVERTEBRAL DISC DISORDER [None]
  - PAIN [None]
